FAERS Safety Report 7365615-X (Version None)
Quarter: 2011Q1

REPORT INFORMATION
  Report Type: 
  Country: None (occurrence: None)
  Receive Date: 20110316
  Receipt Date: 20110316
  Transmission Date: 20110831
  Serious: Yes (Other)
  Sender: FDA-Public Use
  Company Number: None

PATIENT
  Sex: Male

DRUGS (2)
  1. ALPRAZOLAM [Suspect]
     Indication: ANXIETY
     Dosage: ALPRAZOLAM 0.5MG QID ORALLY GENERIC BRAND
     Route: 048
     Dates: start: 20040101
  2. ALPRAZOLAM [Suspect]
     Indication: DEPRESSION
     Dosage: ALPRAZOLAM 0.5MG QID ORALLY GENERIC BRAND
     Route: 048
     Dates: start: 20040101

REACTIONS (4)
  - PRODUCT SUBSTITUTION ISSUE [None]
  - VOMITING [None]
  - NAUSEA [None]
  - HYPERHIDROSIS [None]
